FAERS Safety Report 16584358 (Version 1)
Quarter: 2019Q3

REPORT INFORMATION
  Report Type: Spontaneous
  Country: US (occurrence: US)
  Receive Date: 20190716
  Receipt Date: 20190716
  Transmission Date: 20191004
  Serious: Yes (Hospitalization)
  Sender: FDA-Public Use
  Company Number: None

PATIENT
  Age: 36 Year
  Sex: Female

DRUGS (7)
  1. COSENTYX [Suspect]
     Active Substance: SECUKINUMAB
     Indication: PSORIATIC ARTHROPATHY
     Dosage: ?          OTHER FREQUENCY:ONCE EVERY 4 WEEKS;?
     Route: 058
     Dates: start: 20180125
  2. AMLODIPINE [Concomitant]
     Active Substance: AMLODIPINE BESYLATE
  3. MUPIROCIN. [Concomitant]
     Active Substance: MUPIROCIN
  4. MELOXICAM. [Concomitant]
     Active Substance: MELOXICAM
  5. ROPINIROLE. [Concomitant]
     Active Substance: ROPINIROLE
  6. TRAMT/HCTZ [Concomitant]
  7. LABETALOL [Concomitant]
     Active Substance: LABETALOL\LABETALOL HYDROCHLORIDE

REACTIONS (1)
  - Abscess neck [None]

NARRATIVE: CASE EVENT DATE: 20190623
